FAERS Safety Report 5351414-7 (Version None)
Quarter: 2007Q2

REPORT INFORMATION
  Report Type: 
  Country: None (occurrence: None)
  Receive Date: 20070521
  Receipt Date: 20070131
  Transmission Date: 20071010
  Serious: No
  Sender: FDA-Public Use
  Company Number: WAES 0612USA01627

PATIENT
  Age: 74 Year
  Sex: Female
  Weight: 67.586 kg

DRUGS (9)
  1. JANUVIA [Suspect]
     Indication: DIABETES MELLITUS NON-INSULIN-DEPENDENT
     Dosage: SEE IMAGE
     Route: 048
     Dates: end: 20061130
  2. JANUVIA [Suspect]
     Indication: DIABETES MELLITUS NON-INSULIN-DEPENDENT
     Dosage: SEE IMAGE
     Route: 048
     Dates: start: 20061201
  3. . [Concomitant]
  4. AVALIDE [Concomitant]
  5. BETAPACE [Concomitant]
  6. COUMADIN [Concomitant]
  7. SYNTHROID [Concomitant]
  8. ASPIRIN [Concomitant]
  9. GLIMEPIRIDE [Concomitant]

REACTIONS (1)
  - HYPOGLYCAEMIA [None]
